FAERS Safety Report 16427306 (Version 1)
Quarter: 2019Q3

REPORT INFORMATION
  Report Type: Spontaneous
  Country: US (occurrence: US)
  Receive Date: 20190612
  Receipt Date: 20190612
  Transmission Date: 20191004
  Serious: No
  Sender: FDA-Public Use
  Company Number: None

PATIENT
  Age: 78 Year
  Sex: Female
  Weight: 61.2 kg

DRUGS (12)
  1. ALPHAGAN P [Concomitant]
     Active Substance: BRIMONIDINE TARTRATE
  2. COREG [Concomitant]
     Active Substance: CARVEDILOL
  3. MULTIVITAMINS [Concomitant]
     Active Substance: VITAMINS
  4. SYNTHROID [Concomitant]
     Active Substance: LEVOTHYROXINE SODIUM
  5. VITAMIN B12 [Concomitant]
     Active Substance: CYANOCOBALAMIN
  6. TIMOLOL. [Concomitant]
     Active Substance: TIMOLOL
  7. ELIQUIS [Concomitant]
     Active Substance: APIXABAN
  8. PANTOPRAZOLE [Concomitant]
     Active Substance: PANTOPRAZOLE
  9. REFRESH [Concomitant]
     Active Substance: UNSPECIFIED INGREDIENT
  10. ZOCOR [Concomitant]
     Active Substance: SIMVASTATIN
  11. IBRANCE [Suspect]
     Active Substance: PALBOCICLIB
     Indication: BREAST CANCER METASTATIC
     Route: 048
     Dates: start: 20180908, end: 20190609
  12. LETROZOLE. [Concomitant]
     Active Substance: LETROZOLE

REACTIONS (1)
  - Disease progression [None]
